FAERS Safety Report 24963612 (Version 1)
Quarter: 2025Q1

REPORT INFORMATION
  Report Type: Spontaneous
  Country: US (occurrence: US)
  Receive Date: 20250213
  Receipt Date: 20250213
  Transmission Date: 20250409
  Serious: Yes (Other)
  Sender: DR REDDYS
  Company Number: US-DRL-USA-USA/2025/02/002229

PATIENT
  Age: 58 Year
  Sex: Female

DRUGS (2)
  1. SUNITINIB [Suspect]
     Active Substance: SUNITINIB
     Indication: Metastatic renal cell carcinoma
  2. AXITINIB [Suspect]
     Active Substance: AXITINIB
     Indication: Metastatic renal cell carcinoma

REACTIONS (2)
  - Cardiomyopathy [Recovered/Resolved]
  - Drug-genetic interaction [Recovered/Resolved]
